FAERS Safety Report 10457988 (Version 2)
Quarter: 2014Q4

REPORT INFORMATION
  Report Type: Report from Study
  Country: BR (occurrence: BR)
  Receive Date: 20140916
  Receipt Date: 20141014
  Transmission Date: 20150528
  Serious: Yes (Other)
  Sender: FDA-Public Use
  Company Number: PHHY2014BR119212

PATIENT
  Sex: Male
  Weight: 86 kg

DRUGS (3)
  1. LOTAR [Suspect]
     Active Substance: AMLODIPINE\LOSARTAN
     Indication: HYPERTENSION
     Dosage: 1 DF, QD IN THE MORNING
     Dates: end: 20140727
  2. OMEPRAZOLE. [Concomitant]
     Active Substance: OMEPRAZOLE
     Indication: HIATUS HERNIA
     Dosage: 20 MG, UNK
  3. DIOVAN AMLO FIX [Suspect]
     Active Substance: AMLODIPINE\VALSARTAN
     Indication: HYPERTENSION
     Dosage: 1 DF (320/5MG), QD IN THE MORNING
     Route: 048
     Dates: start: 20140728

REACTIONS (3)
  - Drug ineffective [Unknown]
  - Thyroid neoplasm [Unknown]
  - Blood pressure increased [Unknown]
